FAERS Safety Report 24941902 (Version 1)
Quarter: 2025Q1

REPORT INFORMATION
  Report Type: Spontaneous
  Country: US (occurrence: None)
  Receive Date: 20250206
  Receipt Date: 20250206
  Transmission Date: 20250408
  Serious: Yes (Other)
  Sender: FDA-CTU
  Company Number: None

PATIENT

DRUGS (1)
  1. EZETIMIBE [Suspect]
     Active Substance: EZETIMIBE
     Indication: Blood cholesterol increased
     Dosage: OTHER QUANTITY : 1 TABLET(S);?FREQUENCY : DAILY;?
     Route: 048
     Dates: start: 20241119, end: 20250206

REACTIONS (5)
  - Skin irritation [None]
  - Erythema [None]
  - Dyspnoea [None]
  - Anxiety [None]
  - Chest discomfort [None]

NARRATIVE: CASE EVENT DATE: 20250206
